FAERS Safety Report 18078590 (Version 3)
Quarter: 2020Q3

REPORT INFORMATION
  Report Type: Report from Study
  Country: SI (occurrence: SI)
  Receive Date: 20200727
  Receipt Date: 20200817
  Transmission Date: 20201103
  Serious: Yes (Death, Hospitalization, Other)
  Sender: FDA-Public Use
  Company Number: SI-TAKEDA-2020TUS031951

PATIENT
  Age: 86 Year
  Sex: Male

DRUGS (7)
  1. FINPROS [Concomitant]
     Active Substance: FINASTERIDE
     Dosage: UNK
  2. TOMALON [Concomitant]
     Dosage: UNK
  3. OMNIC [Concomitant]
     Active Substance: TAMSULOSIN HYDROCHLORIDE
     Dosage: UNK
  4. VEDOLIZUMAB [Suspect]
     Active Substance: VEDOLIZUMAB
     Indication: CROHN^S DISEASE
     Dosage: 300 MILLIGRAM, Q4WEEKS
     Route: 042
     Dates: start: 20181012
  5. ACIPAN [Concomitant]
     Active Substance: PANTOPRAZOLE SODIUM
     Dosage: UNK
  6. ASPIRIN                            /00002701/ [Concomitant]
     Active Substance: ASPIRIN
     Dosage: UNK
  7. COUPET [Concomitant]
     Active Substance: ROSUVASTATIN CALCIUM
     Dosage: UNK

REACTIONS (4)
  - Mediastinum neoplasm [Unknown]
  - Death [Fatal]
  - Pleural effusion [Unknown]
  - Metastases to soft tissue [Unknown]
